FAERS Safety Report 5222740-7 (Version None)
Quarter: 2007Q1

REPORT INFORMATION
  Report Type: 
  Country: None (occurrence: None)
  Receive Date: 20070129
  Receipt Date: 20070122
  Transmission Date: 20070707
  Serious: Yes (Other)
  Sender: FDA-Public Use
  Company Number: DEWYE126312JAN07

PATIENT
  Sex: Female

DRUGS (2)
  1. RAPAMUNE [Suspect]
     Indication: PROPHYLAXIS AGAINST TRANSPLANT REJECTION
     Dosage: 2 MG
     Dates: start: 20040101
  2. RAPAMUNE [Suspect]
     Dosage: 1 MG
     Dates: start: 20040101, end: 20070101

REACTIONS (3)
  - AUTOIMMUNE DISORDER [None]
  - COORDINATION ABNORMAL [None]
  - POLYNEUROPATHY [None]
